FAERS Safety Report 5281577-3 (Version None)
Quarter: 2007Q1

REPORT INFORMATION
  Report Type: 
  Country: None (occurrence: None)
  Receive Date: 20061222
  Receipt Date: 20061122
  Transmission Date: 20070707
  Serious: Yes (Hospitalization)
  Sender: FDA-Public Use
  Company Number: 2006ADE/NIFED-030

PATIENT
  Age: 37 Year
  Sex: Female

DRUGS (4)
  1. NIFEDIPINE [Suspect]
     Indication: TOCOLYSIS
     Dosage: 40MG, DAILY, SUBLINGUAL
     Route: 060
  2. NIFEDIPINE [Suspect]
     Dosage: 160MG, DAILY, ORAL
  3. CLARITHROMYCIN [Concomitant]
  4. BETAMETHASONE [Concomitant]

REACTIONS (1)
  - PULMONARY OEDEMA [None]
